FAERS Safety Report 9444504 (Version 1)
Quarter: 2013Q3

REPORT INFORMATION
  Report Type: Spontaneous
  Country: US (occurrence: None)
  Receive Date: 20130805
  Receipt Date: 20130805
  Transmission Date: 20140515
  Serious: Yes (Hospitalization)
  Sender: FDA-Public Use
  Company Number: TPA2013A07243

PATIENT
  Age: 76 Year
  Sex: Female
  Weight: 50.8 kg

DRUGS (1)
  1. EDARBYCLOR [Suspect]
     Indication: HYPERTENSION
     Dosage: 1 IN 1 D, PER ORAL  SEVERAL WEEKS
     Route: 048

REACTIONS (15)
  - Loss of consciousness [None]
  - Loss of consciousness [None]
  - Feeling abnormal [None]
  - Dizziness [None]
  - Asthenia [None]
  - Abdominal discomfort [None]
  - Weight decreased [None]
  - Heart rate decreased [None]
  - Gingival discolouration [None]
  - Eye colour change [None]
  - Drug ineffective [None]
  - Tinnitus [None]
  - Tremor [None]
  - Sluggishness [None]
  - Movement disorder [None]
